FAERS Safety Report 19458707 (Version 1)
Quarter: 2021Q2

REPORT INFORMATION
  Report Type: Other
  Country: QA (occurrence: QA)
  Receive Date: 20210624
  Receipt Date: 20210624
  Transmission Date: 20210717
  Serious: Yes (Death, Life-Threatening, Hospitalization, Other)
  Sender: FDA-Public Use
  Company Number: QA-APPCO PHARMA LLC-2113074

PATIENT
  Age: 75 Year
  Sex: Female

DRUGS (3)
  1. PIPERACILLIN AND TAZOBACTAM [Suspect]
     Active Substance: PIPERACILLIN SODIUM\TAZOBACTAM SODIUM
     Route: 065
  2. CIPROFLOXACIN. [Suspect]
     Active Substance: CIPROFLOXACIN
     Route: 042
  3. METRONIDAZOLE. [Suspect]
     Active Substance: METRONIDAZOLE
     Indication: SPLENIC ABSCESS
     Route: 065

REACTIONS (4)
  - Septic shock [Unknown]
  - Cardiac arrest [Fatal]
  - Vascular device infection [Recovered/Resolved]
  - Product use in unapproved indication [Unknown]
